FAERS Safety Report 6315561-5 (Version None)
Quarter: 2009Q3

REPORT INFORMATION
  Report Type: 
  Country: None (occurrence: None)
  Receive Date: 20090818
  Receipt Date: 20090810
  Transmission Date: 20100115
  Serious: Yes (Hospitalization)
  Sender: FDA-Public Use
  Company Number: JHP200900244

PATIENT
  Age: 27 Year
  Sex: Male

DRUGS (1)
  1. EPINEPHRINE [Suspect]
     Dosage: 2 MG, SINGLE, INTRAVENOUS
     Route: 042

REACTIONS (9)
  - AKINESIA [None]
  - BRAIN NATRIURETIC PEPTIDE INCREASED [None]
  - CARDIAC VENTRICULAR DISORDER [None]
  - CHEST PAIN [None]
  - HYPOTENSION [None]
  - LEFT VENTRICULAR DYSFUNCTION [None]
  - LEFT VENTRICULAR FAILURE [None]
  - MYOCARDITIS [None]
  - PULMONARY CONGESTION [None]
